FAERS Safety Report 5238365-3 (Version None)
Quarter: 2007Q1

REPORT INFORMATION
  Report Type: 
  Country: None (occurrence: None)
  Receive Date: 20070212
  Receipt Date: 20070212
  Transmission Date: 20070707
  Serious: Yes (Other)
  Sender: FDA-Public Use
  Company Number: None

PATIENT

DRUGS (1)
  1. CREST PRO-HEALTH TOOTHPASTE [Suspect]
     Dates: start: 20070204, end: 20070205

REACTIONS (2)
  - BLISTER [None]
  - OEDEMA MOUTH [None]
